FAERS Safety Report 6437842-7 (Version None)
Quarter: 2009Q4

REPORT INFORMATION
  Report Type: 
  Country: None (occurrence: None)
  Receive Date: 20091112
  Receipt Date: 20091103
  Transmission Date: 20100525
  Serious: Yes (Other)
  Sender: FDA-Public Use
  Company Number: BR-PFIZER INC-2009214766

PATIENT
  Age: 51 Year
  Sex: Female
  Weight: 98 kg

DRUGS (7)
  1. CITALOR [Suspect]
     Indication: HYPERCHOLESTEROLAEMIA
     Dosage: 20 MG, 1X/DAY
     Dates: start: 20040501
  2. CITALOR [Suspect]
     Dosage: 20 MG, 1X/DAY
     Route: 048
     Dates: start: 20091001
  3. SIMVASTATIN [Suspect]
     Indication: HYPERCHOLESTEROLAEMIA
     Dosage: 20 MG, UNK
     Dates: start: 20090101, end: 20090101
  4. ATACAND [Concomitant]
     Dosage: UNK
  5. ATENOLOL [Concomitant]
     Dosage: UNK
  6. SOMALGIN [Concomitant]
     Dosage: UNK
  7. PLASIL [Concomitant]
     Dosage: UNK

REACTIONS (15)
  - ABDOMINAL DISCOMFORT [None]
  - APNOEA [None]
  - BLOOD CHOLESTEROL INCREASED [None]
  - DIABETES MELLITUS [None]
  - DRUG INEFFECTIVE [None]
  - FLUID RETENTION [None]
  - HYPOAESTHESIA [None]
  - LIMB INJURY [None]
  - MALAISE [None]
  - MUSCLE SPASMS [None]
  - MUSCULAR WEAKNESS [None]
  - MYALGIA [None]
  - OEDEMA PERIPHERAL [None]
  - PAIN IN EXTREMITY [None]
  - SENSORY DISTURBANCE [None]
